FAERS Safety Report 12142796 (Version 1)
Quarter: 2016Q1

REPORT INFORMATION
  Report Type: Spontaneous
  Country: ES (occurrence: ES)
  Receive Date: 20160303
  Receipt Date: 20160303
  Transmission Date: 20160526
  Serious: Yes (Disabling)
  Sender: FDA-Public Use
  Company Number: ES-TEVA-640424ISR

PATIENT
  Age: 34 Year
  Sex: Male

DRUGS (10)
  1. RISPERIDONE. [Concomitant]
     Active Substance: RISPERIDONE
     Dosage: 1 VIAL EVERY 15 DAYS
     Dates: start: 201001, end: 201301
  2. OLANZAPINE. [Suspect]
     Active Substance: OLANZAPINE
     Indication: PSYCHOTIC DISORDER
     Dates: start: 20121121, end: 201303
  3. RISPERIDONE. [Concomitant]
     Active Substance: RISPERIDONE
     Route: 048
     Dates: start: 201001, end: 201301
  4. LEVOMEPROMAZINE [Concomitant]
     Active Substance: LEVOMEPROMAZINE
  5. QUETIAPINE [Concomitant]
     Active Substance: QUETIAPINE
  6. LORAZEPAM. [Concomitant]
     Active Substance: LORAZEPAM
     Dates: start: 201001
  7. HALOPERIDOL. [Concomitant]
     Active Substance: HALOPERIDOL
  8. FLUPHENAZINE DECANOATE. [Concomitant]
     Active Substance: FLUPHENAZINE DECANOATE
  9. VALPROIC ACID. [Concomitant]
     Active Substance: VALPROIC ACID
     Dates: start: 201001
  10. LORMETAZEPAM [Concomitant]
     Active Substance: LORMETAZEPAM
     Dates: start: 201001

REACTIONS (2)
  - Dystonia [Recovering/Resolving]
  - Camptocormia [Recovering/Resolving]
